FAERS Safety Report 8409343-8 (Version None)
Quarter: 2012Q2

REPORT INFORMATION
  Report Type: 
  Country: None (occurrence: None)
  Receive Date: 20120605
  Receipt Date: 20120529
  Transmission Date: 20120825
  Serious: No
  Sender: FDA-Public Use
  Company Number: US-BIOGENIDEC-2011BI009202

PATIENT
  Sex: Male

DRUGS (1)
  1. TYSABRI [Suspect]
     Indication: MULTIPLE SCLEROSIS
     Route: 042
     Dates: start: 20110208

REACTIONS (14)
  - DIPLOPIA [None]
  - COLOUR BLINDNESS ACQUIRED [None]
  - OEDEMA PERIPHERAL [None]
  - CHRONIC INFLAMMATORY DEMYELINATING POLYRADICULONEUROPATHY [None]
  - BURNING SENSATION [None]
  - STRESS [None]
  - MUSCLE SPASMS [None]
  - PAIN [None]
  - CONTUSION [None]
  - SINUSITIS [None]
  - HYPOTONIA [None]
  - SENSATION OF HEAVINESS [None]
  - UPPER-AIRWAY COUGH SYNDROME [None]
  - DIZZINESS [None]
